FAERS Safety Report 20022012 (Version 1)
Quarter: 2021Q4

REPORT INFORMATION
  Report Type: Spontaneous
  Country: FR (occurrence: FR)
  Receive Date: 20211102
  Receipt Date: 20211102
  Transmission Date: 20220303
  Serious: Yes (Hospitalization)
  Sender: FDA-Public Use
  Company Number: FR-AFSSAPS-LL20171832

PATIENT
  Age: 38 Year
  Sex: Male
  Weight: 59 kg

DRUGS (1)
  1. BACLOFEN [Suspect]
     Active Substance: BACLOFEN
     Indication: Alcohol abuse
     Dosage: 90 MILLIGRAM, UNK
     Route: 065
     Dates: start: 20161209

REACTIONS (4)
  - Cholestasis [Not Recovered/Not Resolved]
  - Anaemia [Not Recovered/Not Resolved]
  - Seizure [Recovered/Resolved]
  - Seizure [Recovered/Resolved]

NARRATIVE: CASE EVENT DATE: 20170623
